FAERS Safety Report 21500136 (Version 2)
Quarter: 2023Q1

REPORT INFORMATION
  Report Type: Spontaneous
  Country: CO (occurrence: CO)
  Receive Date: 20221024
  Receipt Date: 20230114
  Transmission Date: 20230418
  Serious: Yes (Other)
  Sender: FDA-Public Use
  Company Number: CO-AMGEN-COLSP2021203831

PATIENT
  Age: 43 Year
  Sex: Female
  Weight: 68 kg

DRUGS (18)
  1. MVASI [Suspect]
     Active Substance: BEVACIZUMAB-AWWB
     Indication: Lung carcinoma cell type unspecified stage IV
     Dosage: 945 MILLIGRAM, DAY 1
     Route: 042
     Dates: start: 20210401
  2. MVASI [Suspect]
     Active Substance: BEVACIZUMAB-AWWB
     Indication: Adenocarcinoma of colon
     Dosage: 340 MILLIGRAM, FOR 2 DAYS
     Route: 040
     Dates: start: 20210109
  3. MVASI [Suspect]
     Active Substance: BEVACIZUMAB-AWWB
     Dosage: 647 MILLIGRAM, FOR 2 DAYS
     Route: 040
     Dates: start: 20210109
  4. ATEZOLIZUMAB [Concomitant]
     Active Substance: ATEZOLIZUMAB
     Indication: Lung neoplasm malignant
     Dosage: 1200 MILLIGRAM, QD
     Route: 042
     Dates: start: 20210401
  5. IRINOTECAN [Concomitant]
     Active Substance: IRINOTECAN
     Indication: Adenocarcinoma of colon
     Dosage: 324 MILLIGRAM, 2 DAYS
     Route: 040
     Dates: start: 20210109
  6. IRINOTECAN [Concomitant]
     Active Substance: IRINOTECAN
     Dosage: 518.4 MILLIGRAM, 2 DAYS
     Route: 040
     Dates: start: 20210109
  7. FLUOROURACIL\LEUCOVORIN CALCIUM\OXALIPLATIN [Concomitant]
     Active Substance: FLUOROURACIL\LEUCOVORIN CALCIUM\OXALIPLATIN
     Dosage: UNK
  8. BEVACIZUMAB [Concomitant]
     Active Substance: BEVACIZUMAB
     Dosage: 100MG POWDER INJ, 945 MILLIGRAM DYA 1
     Route: 042
  9. LEUCOVORIN CALCIUM [Concomitant]
     Active Substance: LEUCOVORIN CALCIUM
     Indication: Adenocarcinoma of colon
     Dosage: 720 MILLIGRAM, FOR 2 DAYS
     Route: 040
     Dates: start: 20210109
  10. LEUCOVORIN CALCIUM [Concomitant]
     Active Substance: LEUCOVORIN CALCIUM
     Dosage: 1400 MILLIGRAM, FOR 2 DAYS
     Route: 040
     Dates: start: 20210109
  11. DEXAMETHASONE PHOSPHATE [Concomitant]
     Active Substance: DEXAMETHASONE PHOSPHATE
     Indication: Adenocarcinoma of colon
     Dosage: 8 AMPOULE FOR 2 DAYS
     Route: 051
     Dates: start: 20210109
  12. FLUOROURACIL [Concomitant]
     Active Substance: FLUOROURACIL
     Indication: Adenocarcinoma of colon
     Dosage: 720 MILLIGRAM, FOR 2 DAYS
     Route: 040
     Dates: start: 20210109
  13. FLUOROURACIL [Concomitant]
     Active Substance: FLUOROURACIL
     Dosage: 1152 MILLIGRAM, FOR 2 DAYS
     Route: 040
     Dates: start: 20210109
  14. FOSAPREPITANT [Concomitant]
     Active Substance: FOSAPREPITANT
     Indication: Adenocarcinoma of colon
     Dosage: 150 MILLIGRAM, 2 DAYS
     Route: 040
     Dates: start: 20210109
  15. FOSAPREPITANT [Concomitant]
     Active Substance: FOSAPREPITANT
     Dosage: 300 MILLIGRAM, 2 DAYS
     Route: 040
     Dates: start: 20210109
  16. PALONOSETRON [Concomitant]
     Active Substance: PALONOSETRON
     Indication: Adenocarcinoma of colon
     Dosage: 2.5 MILLIGRAM
     Route: 040
     Dates: start: 20210109
  17. PALONOSETRON [Concomitant]
     Active Substance: PALONOSETRON
     Dosage: 5 MILLIGRAM
     Route: 040
     Dates: start: 20210109
  18. ATROPINE SULFATE [Concomitant]
     Active Substance: ATROPINE SULFATE
     Indication: Adenocarcinoma of colon
     Dosage: 1 AMPOULE EVERY 15 DAYS FOR 30 DAYS
     Route: 030

REACTIONS (11)
  - Lung carcinoma cell type unspecified stage IV [Unknown]
  - Neuropathy peripheral [Not Recovered/Not Resolved]
  - Abdominal pain upper [Not Recovered/Not Resolved]
  - Abdominal distension [Not Recovered/Not Resolved]
  - Dyspepsia [Not Recovered/Not Resolved]
  - Palmar-plantar erythrodysaesthesia syndrome [Not Recovered/Not Resolved]
  - Headache [Not Recovered/Not Resolved]
  - Nausea [Not Recovered/Not Resolved]
  - Paraesthesia [Not Recovered/Not Resolved]
  - Constipation [Not Recovered/Not Resolved]
  - Transaminases increased [Unknown]

NARRATIVE: CASE EVENT DATE: 20211212
